FAERS Safety Report 16884290 (Version 2)
Quarter: 2019Q4

REPORT INFORMATION
  Report Type: Spontaneous
  Country: US (occurrence: US)
  Receive Date: 20191004
  Receipt Date: 20191021
  Transmission Date: 20200122
  Serious: Yes (Death)
  Sender: FDA-Public Use
  Company Number: US-JNJFOC-20191001570

PATIENT
  Age: 75 Year
  Sex: Female

DRUGS (1)
  1. IMBRUVICA [Suspect]
     Active Substance: IBRUTINIB
     Indication: DIFFUSE LARGE B-CELL LYMPHOMA
     Dosage: 420 MG, QD
     Route: 048
     Dates: start: 20190712

REACTIONS (3)
  - Disease progression [Fatal]
  - Product use in unapproved indication [Unknown]
  - Off label use [Unknown]

NARRATIVE: CASE EVENT DATE: 20190712
